FAERS Safety Report 22139762 (Version 1)
Quarter: 2023Q1

REPORT INFORMATION
  Report Type: Spontaneous
  Country: US (occurrence: US)
  Receive Date: 20230327
  Receipt Date: 20230327
  Transmission Date: 20230417
  Serious: No
  Sender: FDA-Public Use
  Company Number: US-ABBVIE-4323663

PATIENT
  Sex: Female

DRUGS (1)
  1. HUMIRA [Suspect]
     Active Substance: ADALIMUMAB
     Indication: Product used for unknown indication
     Dosage: INITIAL DOSE,FORM STRENGTH: 40 MILLIGRAM
     Route: 058
     Dates: start: 20230227, end: 20230227

REACTIONS (2)
  - Fatigue [Recovered/Resolved]
  - Wrong technique in product usage process [Unknown]
